FAERS Safety Report 9957446 (Version 1)
Quarter: 2014Q1

REPORT INFORMATION
  Report Type: Report from Study
  Country: US (occurrence: US)
  Receive Date: 20140304
  Receipt Date: 20140304
  Transmission Date: 20141002
  Serious: Yes (Hospitalization)
  Sender: FDA-Public Use
  Company Number: US-ABBVIE-13P-163-1098967-00

PATIENT
  Sex: Female

DRUGS (9)
  1. HUMIRA [Suspect]
     Indication: RHEUMATOID ARTHRITIS
  2. HUMIRA [Suspect]
  3. HUMIRA [Suspect]
  4. METFORMIN HYDROCHLORIDE [Concomitant]
     Indication: DIABETES MELLITUS
  5. SIMVASTATIN [Concomitant]
     Indication: BLOOD CHOLESTEROL INCREASED
     Dosage: 40 MG DAILY
  6. ATENOLOL [Concomitant]
     Indication: HYPERTENSION
     Dosage: 1/2 OF A 25 MG TABLET DAILY
  7. VIT B12 [Concomitant]
     Indication: PRODUCT USED FOR UNKNOWN INDICATION
     Dosage: DAILY
  8. TANDEM [Concomitant]
     Indication: THALASSAEMIA BETA
     Dosage: 106 MG DAILY
  9. ARANESP [Concomitant]
     Indication: HAEMOGLOBIN DECREASED

REACTIONS (4)
  - Knee arthroplasty [Unknown]
  - Arthralgia [Recovering/Resolving]
  - Activities of daily living impaired [Recovering/Resolving]
  - Inflammation [Recovered/Resolved]
